FAERS Safety Report 24862547 (Version 1)
Quarter: 2025Q1

REPORT INFORMATION
  Report Type: Spontaneous
  Country: PL (occurrence: PL)
  Receive Date: 20250120
  Receipt Date: 20250120
  Transmission Date: 20250409
  Serious: Yes (Life-Threatening, Hospitalization)
  Sender: JOHNSON AND JOHNSON
  Company Number: None

PATIENT
  Age: 67 Year
  Sex: Male

DRUGS (5)
  1. INVOKANA [Suspect]
     Active Substance: CANAGLIFLOZIN
     Indication: Diabetes mellitus
     Route: 048
  2. INSULIN HUMAN [Suspect]
     Active Substance: INSULIN HUMAN
     Indication: Diabetes mellitus
     Dosage: IN THE EVENING
     Route: 058
  3. GLUCOPHAGE [Suspect]
     Active Substance: METFORMIN HYDROCHLORIDE
     Indication: Diabetes mellitus
     Route: 048
  4. SYMGLIC 4 MG TABLETKI [Concomitant]
     Indication: Diabetes mellitus
     Route: 048
  5. VESSEL DUE F 250 LSU KAPSU?KI MI?KKIE [Concomitant]
     Indication: Amputation

REACTIONS (9)
  - Communication disorder [Unknown]
  - Hypoglycaemia [Unknown]
  - Acute kidney injury [Unknown]
  - Hyperkalaemia [Unknown]
  - Blood creatinine abnormal [Unknown]
  - C-reactive protein abnormal [Unknown]
  - Metabolic acidosis [Unknown]
  - Blood urea abnormal [Unknown]
  - White blood cell count abnormal [Unknown]

NARRATIVE: CASE EVENT DATE: 20210807
